FAERS Safety Report 7599808-3 (Version None)
Quarter: 2011Q2

REPORT INFORMATION
  Report Type: 
  Country: None (occurrence: None)
  Receive Date: 20110629
  Receipt Date: 20110616
  Transmission Date: 20111010
  Serious: Yes (Other)
  Sender: FDA-Public Use
  Company Number: 2011MA007664

PATIENT
  Age: 26 Year
  Sex: Male

DRUGS (1)
  1. LIDOCAINE HYDROCHLORIDE [Suspect]
     Indication: NASAL CAVITY PACKING
     Dosage: 5 ML OF 4%

REACTIONS (5)
  - TOXICITY TO VARIOUS AGENTS [None]
  - RESTLESSNESS [None]
  - HYPOAESTHESIA [None]
  - METABOLIC ACIDOSIS [None]
  - GRAND MAL CONVULSION [None]
